FAERS Safety Report 9296272 (Version 1)
Quarter: 2013Q2

REPORT INFORMATION
  Report Type: Spontaneous
  Country: US (occurrence: US)
  Receive Date: 20130517
  Receipt Date: 20130517
  Transmission Date: 20140414
  Serious: Yes (Other)
  Sender: FDA-Public Use
  Company Number: US-BAYER-2013-061148

PATIENT
  Sex: 0

DRUGS (3)
  1. ALEVE CAPLET [Suspect]
  2. IBUPROFEN [Suspect]
  3. ADVIL [Suspect]

REACTIONS (1)
  - Renal failure chronic [None]
